FAERS Safety Report 4570414-8 (Version None)
Quarter: 2005Q1

REPORT INFORMATION
  Report Type: 
  Country: None (occurrence: None)
  Receive Date: 20050203
  Receipt Date: 20050203
  Transmission Date: 20050727
  Serious: Yes (Other)
  Sender: FDA-Public Use
  Company Number: None

PATIENT
  Age: 74 Year
  Sex: Female
  Weight: 62.1428 kg

DRUGS (5)
  1. CHERATUSSIN AC SYRUP [Suspect]
     Indication: COUGH
     Dosage: 1 - 2 TSP
     Dates: start: 20041112
  2. CHERATUSSIN AC SYRUP [Suspect]
     Indication: NASOPHARYNGITIS
     Dosage: 1 - 2 TSP
     Dates: start: 20041112
  3. PROCARDIA XL [Concomitant]
  4. ALTACE [Concomitant]
  5. VICODIN [Concomitant]

REACTIONS (8)
  - DYSPHONIA [None]
  - GASTRIC DISORDER [None]
  - GLOSSODYNIA [None]
  - ORAL DISCOMFORT [None]
  - PHARMACEUTICAL PRODUCT COMPLAINT [None]
  - THROAT IRRITATION [None]
  - TONGUE BLISTERING [None]
  - TONGUE EXFOLIATION [None]
